FAERS Safety Report 10241995 (Version 3)
Quarter: 2014Q3

REPORT INFORMATION
  Report Type: Spontaneous
  Country: US (occurrence: US)
  Receive Date: 20140617
  Receipt Date: 20140806
  Transmission Date: 20150326
  Serious: No
  Sender: FDA-Public Use
  Company Number: US-PFIZER INC-2014164872

PATIENT
  Age: 75 Year
  Sex: Male

DRUGS (2)
  1. INLYTA [Suspect]
     Active Substance: AXITINIB
     Dosage: 5 MG, 2X/DAY (10 MG TOTAL DAILY DOSE (1 TABLET,TWICE DAILY))
  2. INLYTA [Suspect]
     Active Substance: AXITINIB
     Indication: RENAL CANCER
     Dosage: 5 MG, 2X/DAY (12 HOURS APART)
     Dates: start: 20131023

REACTIONS (3)
  - Disease progression [Unknown]
  - Vision blurred [Not Recovered/Not Resolved]
  - Renal cancer [Unknown]
